FAERS Safety Report 8095604-1 (Version None)
Quarter: 2012Q1

REPORT INFORMATION
  Report Type: 
  Country: None (occurrence: None)
  Receive Date: 20120129
  Receipt Date: 20111227
  Transmission Date: 20120608
  Serious: No
  Sender: FDA-Public Use
  Company Number: US-ABBOTT-11P-163-0887152-00

PATIENT
  Age: 69 Year
  Sex: Female

DRUGS (10)
  1. PROLIA [Concomitant]
     Indication: OSTEOPOROSIS PROPHYLAXIS
  2. DIOVAN [Concomitant]
     Indication: HYPERTENSION
  3. HUMIRA [Suspect]
     Indication: COLITIS ULCERATIVE
     Dates: start: 20111028
  4. WELCHOL [Concomitant]
     Indication: BLOOD CHOLESTEROL INCREASED
  5. ALBUTEROL [Concomitant]
     Indication: CHRONIC OBSTRUCTIVE PULMONARY DISEASE
  6. CALCIUM PLUS D [Concomitant]
     Indication: PRODUCT USED FOR UNKNOWN INDICATION
     Dosage: DAILY
  7. APRISO [Concomitant]
     Indication: COLITIS
  8. PREDNISONE TAB [Concomitant]
     Indication: PRODUCT USED FOR UNKNOWN INDICATION
  9. FISH OIL [Concomitant]
     Indication: PRODUCT USED FOR UNKNOWN INDICATION
  10. ADVAIR DISKUS 100/50 [Concomitant]
     Indication: CHRONIC OBSTRUCTIVE PULMONARY DISEASE
     Dosage: 250/50 MG

REACTIONS (5)
  - MALAISE [None]
  - ASTHENIA [None]
  - MYALGIA [None]
  - INFLUENZA LIKE ILLNESS [None]
  - IRON DEFICIENCY [None]
